FAERS Safety Report 18383829 (Version 2)
Quarter: 2020Q4

REPORT INFORMATION
  Report Type: Spontaneous
  Country: US (occurrence: US)
  Receive Date: 20201014
  Receipt Date: 20201118
  Transmission Date: 20210114
  Serious: Yes (Disabling, Other)
  Sender: FDA-Public Use
  Company Number: US-TEVA-2020-US-1838356

PATIENT
  Sex: Female

DRUGS (4)
  1. ACETAMINOPHEN W/HYDROCODONE [Suspect]
     Active Substance: ACETAMINOPHEN\HYDROCODONE
     Route: 065
  2. TRAMADOL. [Suspect]
     Active Substance: TRAMADOL
     Route: 065
  3. ACETAMINOPHEN W/OXYCODONE [Suspect]
     Active Substance: ACETAMINOPHEN\OXYCODONE HYDROCHLORIDE
     Route: 065
  4. OXYCONTIN [Suspect]
     Active Substance: OXYCODONE HYDROCHLORIDE
     Route: 065

REACTIONS (10)
  - Withdrawal syndrome [Unknown]
  - Vomiting [Unknown]
  - Abnormal dreams [Unknown]
  - Muscle spasms [Unknown]
  - Alcohol use [Unknown]
  - Dependence [Unknown]
  - Disability [Unknown]
  - Hyperhidrosis [Unknown]
  - Overdose [Unknown]
  - Tremor [Unknown]
